FAERS Safety Report 7552831-7 (Version None)
Quarter: 2011Q2

REPORT INFORMATION
  Report Type: 
  Country: None (occurrence: None)
  Receive Date: 20110616
  Receipt Date: 20110604
  Transmission Date: 20111010
  Serious: Yes (Other)
  Sender: FDA-Public Use
  Company Number: US-PFIZER INC-2011121839

PATIENT
  Sex: Female
  Weight: 79.365 kg

DRUGS (2)
  1. PRISTIQ [Suspect]
     Dosage: 50 MG, 1X/DAY
     Route: 048
     Dates: start: 20100601
  2. CALCIUM [Concomitant]
     Dosage: UNK, DAILY

REACTIONS (4)
  - DYSPNOEA [None]
  - DIZZINESS [None]
  - PARAESTHESIA [None]
  - HYPOAESTHESIA [None]
